FAERS Safety Report 5726864-7 (Version None)
Quarter: 2008Q2

REPORT INFORMATION
  Report Type: 
  Country: None (occurrence: None)
  Receive Date: 20080502
  Receipt Date: 20080424
  Transmission Date: 20081010
  Serious: Yes (Hospitalization, Other)
  Sender: FDA-Public Use
  Company Number: US-ABBOTT-08P-163-0449177-00

PATIENT
  Sex: Female
  Weight: 59.928 kg

DRUGS (7)
  1. HUMIRA [Suspect]
     Indication: RHEUMATOID ARTHRITIS
     Route: 058
     Dates: end: 20070401
  2. HUMIRA [Suspect]
     Dosage: SYRINGE
  3. INFLIXIMAB [Concomitant]
     Indication: RHEUMATOID ARTHRITIS
     Route: 042
     Dates: start: 20070401
  4. METHOTREXATE [Concomitant]
     Indication: RHEUMATOID ARTHRITIS
     Dosage: 6 PILLS 2.5MG WEEKLY
     Route: 048
  5. CYANOCOBALAMIN [Concomitant]
     Indication: VITAMIN SUPPLEMENTATION
     Route: 048
  6. VITAMIN CAP [Concomitant]
     Indication: VITAMIN SUPPLEMENTATION
     Route: 048
  7. ERGOCALCIFEROL [Concomitant]
     Indication: VITAMIN SUPPLEMENTATION
     Route: 048

REACTIONS (5)
  - DRUG INEFFECTIVE [None]
  - INTESTINAL OBSTRUCTION [None]
  - OOPHORECTOMY [None]
  - PAIN [None]
  - SALPINGECTOMY [None]
